FAERS Safety Report 12299428 (Version 1)
Quarter: 2016Q2

REPORT INFORMATION
  Report Type: Spontaneous
  Country: CA (occurrence: CA)
  Receive Date: 20160425
  Receipt Date: 20160425
  Transmission Date: 20160815
  Serious: No
  Sender: FDA-Public Use
  Company Number: CA-JAZZ-2015-CA-011468

PATIENT
  Age: 28 Year
  Sex: Female

DRUGS (5)
  1. DEXTROAMPHETAMINE. [Concomitant]
     Active Substance: DEXTROAMPHETAMINE
     Indication: SOMNOLENCE
     Dosage: UNK
  2. BACLOFEN. [Concomitant]
     Active Substance: BACLOFEN
     Indication: NARCOLEPSY
     Dosage: UNK
  3. BACLOFEN. [Concomitant]
     Active Substance: BACLOFEN
     Indication: CATAPLEXY
  4. XYREM [Suspect]
     Active Substance: SODIUM OXYBATE
     Indication: CATAPLEXY
     Dosage: UNKNOWN DOSE
     Route: 048
  5. XYREM [Suspect]
     Active Substance: SODIUM OXYBATE
     Indication: NARCOLEPSY
     Dosage: 4.5 G/NIGHT IN DIVIDED DOSES
     Route: 048
     Dates: start: 2011

REACTIONS (3)
  - Nausea [Unknown]
  - Tooth disorder [Unknown]
  - Gastrointestinal motility disorder [Unknown]
